FAERS Safety Report 4767137-9 (Version None)
Quarter: 2005Q3

REPORT INFORMATION
  Report Type: 
  Country: None (occurrence: None)
  Receive Date: 20050909
  Receipt Date: 20050909
  Transmission Date: 20060218
  Serious: Yes (Hospitalization)
  Sender: FDA-Public Use
  Company Number: None

PATIENT
  Age: 68 Year
  Sex: Male
  Weight: 113.3 kg

DRUGS (9)
  1. LOVENOX [Suspect]
     Indication: DEEP VEIN THROMBOSIS
     Dosage: 110 MG BID SQ
     Route: 058
     Dates: start: 20050901, end: 20050906
  2. COUMADIN [Suspect]
     Indication: CEREBROVASCULAR ACCIDENT
     Dosage: VARIOUS-2.5, 5, 6, 7.5- DAILY PO
     Route: 048
     Dates: start: 20050901, end: 20050906
  3. WARFARIN SODIUM [Concomitant]
  4. KEFLEX [Concomitant]
  5. ALTACE [Concomitant]
  6. FLEXERIL [Concomitant]
  7. ZANTAC [Concomitant]
  8. DARVOCET-N 100 [Concomitant]
  9. TOPROL-XL [Concomitant]

REACTIONS (1)
  - SPINAL HAEMATOMA [None]
